FAERS Safety Report 4788119-7 (Version None)
Quarter: 2005Q3

REPORT INFORMATION
  Report Type: 
  Country: None (occurrence: None)
  Receive Date: 20050920
  Receipt Date: 20050321
  Transmission Date: 20060218
  Serious: Yes (Hospitalization, Other)
  Sender: FDA-Public Use
  Company Number: PHEH2004US11824

PATIENT
  Age: 80 Year
  Sex: Female
  Weight: 192 kg

DRUGS (5)
  1. FEMARA [Suspect]
     Dosage: 2.5 MG, QD
     Dates: start: 20040903, end: 20040915
  2. ASPIRIN [Concomitant]
  3. LOPRESSOR (METROPROLOL TARTRATE) SOLUTION FOR INJECTION [Concomitant]
  4. SYNTHROID [Concomitant]
  5. HYDROXYCHLOROQUINE SULFATE TABLETS USP (NGX) (HYDROXYCHLOROQUINE) TALB [Concomitant]

REACTIONS (2)
  - PAIN IN EXTREMITY [None]
  - THROMBOSIS [None]
